FAERS Safety Report 20179556 (Version 1)
Quarter: 2021Q4

REPORT INFORMATION
  Report Type: Spontaneous
  Country: CA (occurrence: CA)
  Receive Date: 20211214
  Receipt Date: 20211214
  Transmission Date: 20220303
  Serious: Yes (Other)
  Sender: FDA-Public Use
  Company Number: CA-ABBVIE-21K-028-4194456-00

PATIENT

DRUGS (2)
  1. CARBIDOPA\LEVODOPA [Suspect]
     Active Substance: CARBIDOPA\LEVODOPA
     Indication: Product used for unknown indication
     Route: 050
  2. CARBIDOPA\LEVODOPA [Suspect]
     Active Substance: CARBIDOPA\LEVODOPA

REACTIONS (9)
  - Neoplasm [Unknown]
  - Stoma site reaction [Unknown]
  - Dermatitis contact [Unknown]
  - Discharge [Unknown]
  - Memory impairment [Unknown]
  - Procedural anxiety [Unknown]
  - Dyskinesia [Unknown]
  - Hyperhidrosis [Unknown]
  - Skin exfoliation [Unknown]
